FAERS Safety Report 5502283-3 (Version None)
Quarter: 2007Q4

REPORT INFORMATION
  Report Type: 
  Country: None (occurrence: None)
  Receive Date: 20071030
  Receipt Date: 20071016
  Transmission Date: 20080405
  Serious: Yes (Disabling, Other)
  Sender: FDA-Public Use
  Company Number: ES-RANBAXY-2007RR-10716

PATIENT

DRUGS (2)
  1. ISOTRETINOIN [Suspect]
     Indication: ACNE
     Dosage: 40 MG, QD
     Route: 048
     Dates: start: 20050101
  2. DIANE [Concomitant]
     Indication: CONTRACEPTION

REACTIONS (2)
  - MYOPIA [None]
  - PREDISPOSITION TO DISEASE [None]
